FAERS Safety Report 24844765 (Version 1)
Quarter: 2025Q1

REPORT INFORMATION
  Report Type: Spontaneous
  Country: RU (occurrence: RU)
  Receive Date: 20250115
  Receipt Date: 20250115
  Transmission Date: 20250409
  Serious: Yes (Hospitalization)
  Sender: SANOFI AVENTIS
  Company Number: RU-SA-2025SA011893

PATIENT
  Age: 9 Year
  Sex: Female

DRUGS (3)
  1. APIDRA [Suspect]
     Active Substance: INSULIN GLULISINE
     Indication: Type 1 diabetes mellitus
     Route: 058
  2. TOUJEO [Suspect]
     Active Substance: INSULIN GLARGINE
     Indication: Type 1 diabetes mellitus
     Dosage: 7 IU, QD
     Route: 058
     Dates: start: 202501, end: 202501
  3. TOUJEO [Suspect]
     Active Substance: INSULIN GLARGINE
     Dosage: 6 IU, QD
     Route: 058
     Dates: start: 20250109

REACTIONS (3)
  - Nausea [Not Recovered/Not Resolved]
  - Hypophagia [Not Recovered/Not Resolved]
  - Blood glucose decreased [Not Recovered/Not Resolved]

NARRATIVE: CASE EVENT DATE: 20250106
